FAERS Safety Report 13385341 (Version 3)
Quarter: 2017Q4

REPORT INFORMATION
  Report Type: Report from Study
  Country: None (occurrence: US)
  Receive Date: 20170329
  Receipt Date: 20171220
  Transmission Date: 20180320
  Serious: Yes (Hospitalization, Other)
  Sender: FDA-Public Use
  Company Number: US-ABBVIE-17K-163-1920156-00

PATIENT
  Age: 59 Year
  Sex: Female

DRUGS (3)
  1. METHOTREXATE. [Suspect]
     Active Substance: METHOTREXATE
     Indication: PRODUCT USED FOR UNKNOWN INDICATION
     Route: 065
  2. HUMIRA [Suspect]
     Active Substance: ADALIMUMAB
     Indication: PSORIATIC ARTHROPATHY
     Route: 058
  3. SEA SALT [Suspect]
     Active Substance: SEA SALT
     Indication: PRODUCT USED FOR UNKNOWN INDICATION
     Route: 065

REACTIONS (16)
  - Hepatic steatosis [Recovered/Resolved]
  - Nasopharyngitis [Not Recovered/Not Resolved]
  - Post-traumatic pain [Unknown]
  - Urticaria [Recovered/Resolved]
  - Post-traumatic neck syndrome [Not Recovered/Not Resolved]
  - Skin induration [Not Recovered/Not Resolved]
  - Head injury [Unknown]
  - Road traffic accident [Unknown]
  - Insomnia [Unknown]
  - Cataract [Not Recovered/Not Resolved]
  - Peripheral swelling [Unknown]
  - Hyperacusis [Not Recovered/Not Resolved]
  - Food allergy [Unknown]
  - Contusion [Unknown]
  - Nerve injury [Not Recovered/Not Resolved]
  - Stress [Unknown]

NARRATIVE: CASE EVENT DATE: 2017
